FAERS Safety Report 4535157-5 (Version None)
Quarter: 2004Q4

REPORT INFORMATION
  Report Type: 
  Country: None (occurrence: None)
  Receive Date: 20041222
  Receipt Date: 20041123
  Transmission Date: 20050328
  Serious: Yes (Disabling)
  Sender: FDA-Public Use
  Company Number: US-MERCK-0411USA03848

PATIENT
  Age: 57 Year
  Sex: Female

DRUGS (3)
  1. VIOXX [Suspect]
     Indication: NECK PAIN
     Route: 048
     Dates: start: 20020101, end: 20040930
  2. DIGOXIN [Concomitant]
     Route: 065
  3. LOTREL [Concomitant]
     Route: 065

REACTIONS (1)
  - CHEST PAIN [None]
